FAERS Safety Report 4901212-0 (Version None)
Quarter: 2006Q1

REPORT INFORMATION
  Report Type: 
  Country: None (occurrence: None)
  Receive Date: 20060201
  Receipt Date: 20060125
  Transmission Date: 20060701
  Serious: Yes (Death, Hospitalization)
  Sender: FDA-Public Use
  Company Number: 028-C5013-06010085

PATIENT
  Age: 57 Year
  Sex: Male

DRUGS (8)
  1. REVLIMID [Suspect]
     Indication: MULTIPLE MYELOMA
     Dosage: 25 MG, OD, ORAL
     Route: 048
     Dates: start: 20051222, end: 20051227
  2. DEXAMETHASONE [Suspect]
     Indication: MULTIPLE MYELOMA
     Dosage: 40 MG, DAYS 1-4, 9-12, 17-20 OF 28 DAY CYCLE, ORAL
     Route: 048
     Dates: start: 20051222, end: 20051227
  3. RANIDITINE (RANIDITINE) [Concomitant]
  4. DIAZEPAM (DIAZEPAM) (TABLETS) [Concomitant]
  5. DEXAMETHASONE [Concomitant]
  6. DURAGESIC-100 [Concomitant]
  7. ZOLOFT [Concomitant]
  8. PAMIDRONATE DISODIUM [Concomitant]

REACTIONS (17)
  - BLOOD IMMUNOGLOBULIN G INCREASED [None]
  - DIZZINESS [None]
  - FEBRILE NEUTROPENIA [None]
  - HYPERCALCAEMIA [None]
  - INTERVERTEBRAL DISC PROTRUSION [None]
  - LOSS OF CONSCIOUSNESS [None]
  - MULTIPLE MYELOMA [None]
  - PLASMACYTOMA [None]
  - PLEURAL EFFUSION [None]
  - PNEUMONIA [None]
  - PRODUCTIVE COUGH [None]
  - PROTEINURIA [None]
  - RADIATION PNEUMONITIS [None]
  - RESPIRATORY ARREST [None]
  - SCIATICA [None]
  - STEM CELL TRANSPLANT [None]
  - VISION BLURRED [None]
